FAERS Safety Report 13641802 (Version 1)
Quarter: 2017Q2

REPORT INFORMATION
  Report Type: Report from Study
  Country: BR (occurrence: BR)
  Receive Date: 20170612
  Receipt Date: 20170612
  Transmission Date: 20170830
  Serious: Yes (Death, Hospitalization, Other)
  Sender: FDA-Public Use
  Company Number: PHHY2017BR086444

PATIENT
  Sex: Female

DRUGS (1)
  1. EXELON PATCH [Suspect]
     Active Substance: RIVASTIGMINE
     Indication: CONFUSIONAL STATE
     Dosage: QD
     Route: 062

REACTIONS (5)
  - Neoplasm malignant [Unknown]
  - Weight decreased [Unknown]
  - Death [Fatal]
  - Pain [Unknown]
  - Infection [Unknown]
